FAERS Safety Report 8017442-8 (Version None)
Quarter: 2012Q1

REPORT INFORMATION
  Report Type: 
  Country: None (occurrence: None)
  Receive Date: 20120103
  Receipt Date: 20111222
  Transmission Date: 20120608
  Serious: Yes (Hospitalization)
  Sender: FDA-Public Use
  Company Number: PH-BRISTOL-MYERS SQUIBB COMPANY-16319329

PATIENT
  Age: 38 Year
  Sex: Male

DRUGS (2)
  1. ABILIFY [Suspect]
     Indication: SCHIZOPHRENIA
     Dosage: INITIALLY GIVEN 6MG THEN INCREASED TO 12MG
     Route: 048
     Dates: start: 20111205
  2. RISPERIDONE [Concomitant]
     Dates: start: 20111222

REACTIONS (1)
  - CONDITION AGGRAVATED [None]
